FAERS Safety Report 4658409-7 (Version None)
Quarter: 2005Q2

REPORT INFORMATION
  Report Type: 
  Country: None (occurrence: None)
  Receive Date: 20050509
  Receipt Date: 20050426
  Transmission Date: 20051028
  Serious: Yes (Death, Hospitalization)
  Sender: FDA-Public Use
  Company Number: HQWYE888819OCT04

PATIENT
  Age: 68 Year
  Sex: Female
  Weight: 83.54 kg

DRUGS (3)
  1. MYLOTARG [Suspect]
     Indication: ACUTE MYELOID LEUKAEMIA
     Dosage: 12 MG 1X PER 1 DAY, UNKNOWN
     Route: 065
     Dates: start: 20040205, end: 20040205
  2. MYLOTARG [Suspect]
     Indication: ACUTE MYELOID LEUKAEMIA
     Dosage: 12 MG 1X PER 1 DAY, UNKNOWN
     Route: 065
     Dates: start: 20040212, end: 20040212
  3. CYTARABINE [Suspect]
     Indication: CHEMOTHERAPY
     Dosage: 5880 MG EVERY 12 HOURS TIMES 6 DOSES, INTRAVENOUS
     Route: 042
     Dates: start: 20040205, end: 20040208

REACTIONS (15)
  - BLOOD BILIRUBIN INCREASED [None]
  - BLOOD CULTURE POSITIVE [None]
  - CARDIAC ARREST [None]
  - CELLULITIS [None]
  - CHEST X-RAY ABNORMAL [None]
  - FEBRILE NEUTROPENIA [None]
  - GENERAL PHYSICAL HEALTH DETERIORATION [None]
  - HAEMATOMA [None]
  - HERPES SIMPLEX [None]
  - MITRAL VALVE INCOMPETENCE [None]
  - PULMONARY VALVE INCOMPETENCE [None]
  - RESPIRATORY DISORDER [None]
  - STAPHYLOCOCCAL INFECTION [None]
  - TRICUSPID VALVE INCOMPETENCE [None]
  - URINARY TRACT INFECTION STAPHYLOCOCCAL [None]
